FAERS Safety Report 6183159-8 (Version None)
Quarter: 2009Q2

REPORT INFORMATION
  Report Type: 
  Country: None (occurrence: None)
  Receive Date: 20090506
  Receipt Date: 20090422
  Transmission Date: 20091009
  Serious: Yes (Hospitalization)
  Sender: FDA-Public Use
  Company Number: RU-1169368

PATIENT
  Age: 59 Year
  Sex: Female

DRUGS (6)
  1. AZOPT [Suspect]
     Indication: INTRAOCULAR PRESSURE INCREASED
     Dosage: BID, OPHTHALMIC
     Route: 047
     Dates: start: 20090321, end: 20090401
  2. TOBRADEX [Suspect]
     Indication: POSTOPERATIVE CARE
     Dosage: 6 GTTS; OPHTHALMIC
     Route: 047
     Dates: start: 20090321, end: 20090401
  3. ARUTIMOL (TIMOLOL MALEATE) [Concomitant]
  4. GLYCEROL 2.6% [Concomitant]
  5. CORNEREGEL (DEXPANTHENOL) [Concomitant]
  6. DIACARB (ACETAZOLAMIDE) [Concomitant]

REACTIONS (4)
  - BLINDNESS [None]
  - CHOROIDAL DETACHMENT [None]
  - EYE PAIN [None]
  - HYPOTONY OF EYE [None]
